FAERS Safety Report 4508200-7 (Version None)
Quarter: 2004Q4

REPORT INFORMATION
  Report Type: 
  Country: None (occurrence: None)
  Receive Date: 20041123
  Receipt Date: 20031112
  Transmission Date: 20050328
  Serious: No
  Sender: FDA-Public Use
  Company Number: US-GLAXOSMITHKLINE-A0439409A

PATIENT
  Age: 63 Year
  Sex: Male

DRUGS (13)
  1. WELLBUTRIN [Suspect]
     Indication: DEPRESSION
     Dosage: 150MG TWICE PER DAY
     Route: 048
     Dates: start: 20031101
  2. DESIPRAMINE HCL [Concomitant]
  3. KLONOPIN [Concomitant]
  4. TENORMIN [Concomitant]
  5. VASOTEC [Concomitant]
  6. SYNTHROID [Concomitant]
  7. PLAVIX [Concomitant]
  8. IMDUR [Concomitant]
  9. CATAPRES [Concomitant]
  10. HYTRIN [Concomitant]
  11. ZANTAC [Concomitant]
  12. LANSOPRAZOLE [Concomitant]
  13. LIPITOR [Concomitant]

REACTIONS (1)
  - CONDITION AGGRAVATED [None]
